FAERS Safety Report 6057152-X (Version None)
Quarter: 2009Q1

REPORT INFORMATION
  Report Type: 
  Country: None (occurrence: None)
  Receive Date: 20090129
  Receipt Date: 20080708
  Transmission Date: 20090719
  Serious: No
  Sender: FDA-Public Use
  Company Number: A0698316A

PATIENT
  Age: 15 Year
  Sex: Male
  Weight: 62.3 kg

DRUGS (7)
  1. WELLBUTRIN [Suspect]
     Dosage: 75MG IN THE MORNING
     Route: 048
     Dates: start: 20071001, end: 20071224
  2. LAMICTAL [Concomitant]
  3. UNKNOWN MEDICATION [Concomitant]
  4. TUMS [Concomitant]
  5. RITALIN [Concomitant]
  6. CLARITIN [Concomitant]
  7. MULTI-VITAMIN [Concomitant]

REACTIONS (4)
  - ALOPECIA [None]
  - HAIR COLOUR CHANGES [None]
  - HAIR TEXTURE ABNORMAL [None]
  - THERAPEUTIC RESPONSE UNEXPECTED [None]
